FAERS Safety Report 5316187-2 (Version None)
Quarter: 2007Q2

REPORT INFORMATION
  Report Type: 
  Country: None (occurrence: None)
  Receive Date: 20070503
  Receipt Date: 20070424
  Transmission Date: 20071010
  Serious: Yes (Other)
  Sender: FDA-Public Use
  Company Number: FR-PFIZER INC-2007033492

PATIENT
  Sex: Female

DRUGS (1)
  1. CHAMPIX [Suspect]

REACTIONS (4)
  - ADNEXA UTERI PAIN [None]
  - BREAST PAIN [None]
  - HOT FLUSH [None]
  - MENORRHAGIA [None]
